FAERS Safety Report 6037627-X (Version None)
Quarter: 2009Q1

REPORT INFORMATION
  Report Type: 
  Country: None (occurrence: None)
  Receive Date: 20090114
  Receipt Date: 20090112
  Transmission Date: 20090719
  Serious: No
  Sender: FDA-Public Use
  Company Number: US-B.I. PHARMACEUTICALS,INC./RIDGEFIELD-2009-BP-00330BP

PATIENT
  Age: 73 Year
  Sex: Male

DRUGS (6)
  1. FLOMAX [Suspect]
     Indication: BENIGN PROSTATIC HYPERPLASIA
     Dosage: .4MG
     Route: 048
     Dates: start: 20081101, end: 20090111
  2. TRANZINE [Concomitant]
     Indication: NERVOUSNESS
  3. ZETIA [Concomitant]
     Indication: BLOOD CHOLESTEROL INCREASED
  4. LOTREL [Concomitant]
     Indication: HYPERTENSION
  5. ALLOPURINOL [Concomitant]
     Indication: GOUT
  6. METFORMIN HCL [Concomitant]
     Indication: DIABETES MELLITUS

REACTIONS (4)
  - DRY EYE [None]
  - INSOMNIA [None]
  - NOCTURIA [None]
  - VISION BLURRED [None]
